FAERS Safety Report 9431326 (Version 1)
Quarter: 2013Q3

REPORT INFORMATION
  Report Type: Spontaneous
  Country: US (occurrence: US)
  Receive Date: 20130730
  Receipt Date: 20130730
  Transmission Date: 20140515
  Serious: Yes (Other)
  Sender: FDA-Public Use
  Company Number: US-ROXANE LABORATORIES, INC.-2013-RO-01236RO

PATIENT
  Age: 10 Year
  Sex: Female

DRUGS (6)
  1. CYCLOPHOSPHAMIDE TABLETS USP [Suspect]
     Indication: ALLERGIC GRANULOMATOUS ANGIITIS
     Route: 048
  2. CYCLOPHOSPHAMIDE [Suspect]
     Indication: ALLERGIC GRANULOMATOUS ANGIITIS
     Route: 042
  3. CORTICOSTEROIDS [Suspect]
     Indication: ALLERGIC GRANULOMATOUS ANGIITIS
     Route: 042
  4. CORTICOSTEROIDS [Suspect]
     Route: 048
  5. METHOTREXATE [Suspect]
     Indication: ALLERGIC GRANULOMATOUS ANGIITIS
     Route: 058
  6. RITUXIMAB [Suspect]
     Indication: ALLERGIC GRANULOMATOUS ANGIITIS

REACTIONS (1)
  - Pancytopenia [Unknown]
